FAERS Safety Report 18580181 (Version 5)
Quarter: 2022Q1

REPORT INFORMATION
  Report Type: Spontaneous
  Country: JP (occurrence: JP)
  Receive Date: 20201204
  Receipt Date: 20220313
  Transmission Date: 20220423
  Serious: Yes (Other)
  Sender: FDA-Public Use
  Company Number: JP-UCBSA-2020049825

PATIENT
  Sex: Female

DRUGS (5)
  1. NEUPRO [Suspect]
     Active Substance: ROTIGOTINE
     Indication: Parkinson^s disease
     Dosage: STRENGTH: 2 MG/24HR
     Route: 048
     Dates: start: 20200310, end: 20201027
  2. AZILECT [Suspect]
     Active Substance: RASAGILINE MESYLATE
     Indication: Parkinson^s disease
     Dosage: UNK
     Route: 048
     Dates: start: 20200210, end: 20201027
  3. BENSERAZIDE HYDROCHLORIDE\LEVODOPA [Suspect]
     Active Substance: BENSERAZIDE HYDROCHLORIDE\LEVODOPA
     Indication: Parkinson^s disease
     Dosage: UNK
     Route: 048
  4. BENSERAZIDE HYDROCHLORIDE\LEVODOPA [Suspect]
     Active Substance: BENSERAZIDE HYDROCHLORIDE\LEVODOPA
     Dosage: 2 DOSAGE FORM, ONCE DAILY (QD)
     Route: 048
  5. LORNOXICAM [Concomitant]
     Active Substance: LORNOXICAM
     Indication: Hypoaesthesia
     Dosage: UNK

REACTIONS (12)
  - Seizure [Unknown]
  - Blood creatine phosphokinase increased [Unknown]
  - Posture abnormal [Not Recovered/Not Resolved]
  - Muscle strain [Unknown]
  - Back pain [Recovering/Resolving]
  - Muscle tightness [Unknown]
  - Musculoskeletal stiffness [Recovering/Resolving]
  - Hypoaesthesia [Unknown]
  - Arthralgia [Unknown]
  - Joint space narrowing [Unknown]
  - Gastritis [Unknown]
  - Incorrect route of product administration [Unknown]

NARRATIVE: CASE EVENT DATE: 20200101
